FAERS Safety Report 7212014-7 (Version None)
Quarter: 2011Q1

REPORT INFORMATION
  Report Type: 
  Country: None (occurrence: None)
  Receive Date: 20110106
  Receipt Date: 20101227
  Transmission Date: 20110831
  Serious: No
  Sender: FDA-Public Use
  Company Number: US-BIOGENIDEC-2011BI000204

PATIENT
  Age: 59 Year
  Sex: Female

DRUGS (1)
  1. AVONEX [Suspect]
     Indication: MULTIPLE SCLEROSIS
     Route: 030
     Dates: start: 20010101

REACTIONS (8)
  - HEADACHE [None]
  - OROPHARYNGEAL PAIN [None]
  - SINUS DISORDER [None]
  - SOMNOLENCE [None]
  - INFLUENZA [None]
  - FATIGUE [None]
  - COUGH [None]
  - CHILLS [None]
